FAERS Safety Report 19468658 (Version 1)
Quarter: 2021Q2

REPORT INFORMATION
  Report Type: Spontaneous
  Country: GB (occurrence: GB)
  Receive Date: 20210628
  Receipt Date: 20210628
  Transmission Date: 20210717
  Serious: Yes (Death, Hospitalization)
  Sender: FDA-Public Use
  Company Number: GB-AKCEA THERAPEUTICS, INC.-2021IS001501

PATIENT
  Age: 84 Year
  Sex: Male

DRUGS (10)
  1. APIXABAN [Concomitant]
     Active Substance: APIXABAN
     Route: 065
  2. TEGSEDI [Suspect]
     Active Substance: INOTERSEN SODIUM
     Indication: HEREDITARY NEUROPATHIC AMYLOIDOSIS
     Route: 058
     Dates: start: 20200417
  3. LANSOPRAZOLE. [Concomitant]
     Active Substance: LANSOPRAZOLE
     Route: 065
  4. FINASTERIDE. [Concomitant]
     Active Substance: FINASTERIDE
     Route: 065
  5. BUMETANIDE. [Concomitant]
     Active Substance: BUMETANIDE
     Route: 065
  6. ISSD (INTEGRATED SYRINGE SAFETY DEVICE) [Suspect]
     Active Substance: DEVICE
  7. BISOPROLOL [Concomitant]
     Active Substance: BISOPROLOL
     Route: 065
  8. ROSUVASTATIN. [Concomitant]
     Active Substance: ROSUVASTATIN
     Route: 065
  9. CLOPIDOGREL [Concomitant]
     Active Substance: CLOPIDOGREL BISULFATE
     Route: 065
  10. LEVOTHYROXINE. [Concomitant]
     Active Substance: LEVOTHYROXINE
     Route: 065

REACTIONS (8)
  - Scrotal swelling [Unknown]
  - Infection [Unknown]
  - Peripheral swelling [Unknown]
  - Abdominal distension [Unknown]
  - Renal failure [Fatal]
  - Staphylococcal bacteraemia [Unknown]
  - Cardiac failure [Fatal]
  - Pulmonary oedema [Unknown]

NARRATIVE: CASE EVENT DATE: 202106
